FAERS Safety Report 25246508 (Version 1)
Quarter: 2025Q2

REPORT INFORMATION
  Report Type: Spontaneous
  Country: US (occurrence: None)
  Receive Date: 20250428
  Receipt Date: 20250428
  Transmission Date: 20250716
  Serious: Yes (unspecified)
  Sender: FDA-CTU
  Company Number: None

PATIENT
  Age: 32 Year
  Sex: Male

DRUGS (1)
  1. TERBINAFINE HYDROCHLORIDE [Suspect]
     Active Substance: TERBINAFINE HYDROCHLORIDE
     Indication: Onychomycosis
     Dosage: 250 MG DAILY ORAL
     Route: 048
     Dates: start: 20250226, end: 20250403

REACTIONS (3)
  - Neutropenia [None]
  - Agranulocytosis [None]
  - Therapy cessation [None]

NARRATIVE: CASE EVENT DATE: 20250402
